FAERS Safety Report 8418243-9 (Version None)
Quarter: 2012Q2

REPORT INFORMATION
  Report Type: 
  Country: None (occurrence: None)
  Receive Date: 20120531
  Receipt Date: 20120514
  Transmission Date: 20120825
  Serious: Yes (Hospitalization)
  Sender: FDA-Public Use
  Company Number: 217531

PATIENT

DRUGS (1)
  1. INNOHEP [Suspect]
     Indication: PROPHYLAXIS

REACTIONS (2)
  - PULMONARY EMBOLISM [None]
  - TROPONIN INCREASED [None]
